FAERS Safety Report 4458034-7 (Version None)
Quarter: 2004Q3

REPORT INFORMATION
  Report Type: 
  Country: None (occurrence: None)
  Receive Date: 20040922
  Receipt Date: 20040909
  Transmission Date: 20050211
  Serious: Yes (Hospitalization, Other)
  Sender: FDA-Public Use
  Company Number: HQWYE983710SEP04

PATIENT
  Age: 77 Year
  Sex: Female

DRUGS (4)
  1. DIAMOX [Suspect]
     Indication: GLAUCOMA
     Dosage: 1 G 1X PER 1 DAY
  2. ALPHAGAN [Concomitant]
  3. TIMPILO (PILOCARPINE HYDROCHLORIDE/TIMOLOL MALEATE) [Concomitant]
  4. ARICEPT [Concomitant]

REACTIONS (4)
  - DERMATITIS EXFOLIATIVE [None]
  - DRUG ERUPTION [None]
  - GLOSSODYNIA [None]
  - STEVENS-JOHNSON SYNDROME [None]
